FAERS Safety Report 14066114 (Version 2)
Quarter: 2018Q1

REPORT INFORMATION
  Report Type: Spontaneous
  Country: US (occurrence: US)
  Receive Date: 20171009
  Receipt Date: 20180103
  Transmission Date: 20180508
  Serious: Yes (Other)
  Sender: FDA-Public Use
  Company Number: US-JNJFOC-20150515492

PATIENT
  Age: 84 Year
  Sex: Male

DRUGS (11)
  1. IMBRUVICA [Suspect]
     Active Substance: IBRUTINIB
     Indication: CHRONIC LYMPHOCYTIC LEUKAEMIA
     Dosage: 420 MG, QD
     Route: 048
     Dates: start: 20150416
  2. KCL [Concomitant]
     Active Substance: POTASSIUM CHLORIDE
  3. FERROUS SULFATE. [Concomitant]
     Active Substance: FERROUS SULFATE
  4. PRAVASTATIN. [Concomitant]
     Active Substance: PRAVASTATIN
  5. PRIMIDONE. [Concomitant]
     Active Substance: PRIMIDONE
  6. ASA [Concomitant]
     Active Substance: ASPIRIN
  7. METOPROLOL. [Concomitant]
     Active Substance: METOPROLOL
  8. IMBRUVICA [Suspect]
     Active Substance: IBRUTINIB
     Indication: CHRONIC LYMPHOCYTIC LEUKAEMIA
     Dosage: 280 MG, QD
     Route: 048
     Dates: start: 20150406, end: 201709
  9. LASIX [Concomitant]
     Active Substance: FUROSEMIDE
  10. MULTIVITAMINS [Concomitant]
     Active Substance: VITAMINS
  11. OMEPRAZOLE. [Concomitant]
     Active Substance: OMEPRAZOLE

REACTIONS (3)
  - Cataract [Recovered/Resolved]
  - Diarrhoea [Recovering/Resolving]
  - Nail disorder [Unknown]

NARRATIVE: CASE EVENT DATE: 2015
